FAERS Safety Report 16032778 (Version 1)
Quarter: 2019Q1

REPORT INFORMATION
  Report Type: Spontaneous
  Country: US (occurrence: US)
  Receive Date: 20190305
  Receipt Date: 20190305
  Transmission Date: 20190418
  Serious: No
  Sender: FDA-Public Use
  Company Number: US-IMPAX LABORATORIES, LLC-2018-IPXL-02063

PATIENT
  Age: 69 Year
  Sex: Female
  Weight: 50 kg

DRUGS (15)
  1. RYTARY [Suspect]
     Active Substance: CARBIDOPA\LEVODOPA
     Dosage: 1 CAP 36.25/145 MG +1 CAPSULE OF 61.25/245 MG (7 AM,5 PM), 2 CAP 36.25/145 MG(12 PM, 10 PM)
     Route: 048
     Dates: start: 201806
  2. XANAX [Suspect]
     Active Substance: ALPRAZOLAM
     Indication: ANXIETY
     Dosage: UNK, AS NEEDED
     Route: 048
     Dates: start: 201708, end: 2017
  3. XANAX [Suspect]
     Active Substance: ALPRAZOLAM
     Indication: PANIC ATTACK
     Dosage: 0.5 MG, 3 /DAY
     Route: 048
     Dates: start: 201710, end: 20180611
  4. XANAX [Suspect]
     Active Substance: ALPRAZOLAM
     Dosage: UNK, HALF TABLET
     Route: 048
     Dates: start: 20180612
  5. LEVOTHYROXINE. [Concomitant]
     Active Substance: LEVOTHYROXINE
     Indication: THYROID DISORDER
     Dosage: UNK, ONE TABLET, ONCE DAILY
     Route: 048
  6. VITAMINS NOS [Concomitant]
     Active Substance: VITAMINS
     Indication: SUPPLEMENTATION THERAPY
     Dosage: UNK
     Route: 048
  7. LEXAPRO [Concomitant]
     Active Substance: ESCITALOPRAM OXALATE
     Indication: ANXIETY
     Dosage: 5 MG, UNK
     Route: 065
  8. LEXAPRO [Concomitant]
     Active Substance: ESCITALOPRAM OXALATE
     Dosage: 10 MG, UNK
     Route: 065
     Dates: start: 201806
  9. ENTACAPONE. [Concomitant]
     Active Substance: ENTACAPONE
     Indication: PARKINSON^S DISEASE
     Dosage: UNK, 1 ENTACAPONE AT 7 AM AND 5 PM
     Route: 065
     Dates: end: 201806
  10. ENTACAPONE. [Concomitant]
     Active Substance: ENTACAPONE
     Dosage: UNK, ONE ENTACAPONE EVERYTIME HE TAKES RYTARY
     Route: 065
     Dates: start: 201806
  11. XANAX [Suspect]
     Active Substance: ALPRAZOLAM
     Dosage: UNK, 1.5 TABLET PER DAY AS NEEDED
     Route: 048
     Dates: start: 2018
  12. RYTARY [Suspect]
     Active Substance: CARBIDOPA\LEVODOPA
     Dosage: 36.25/145 MG, TWO CAPSULES, TWICE DAILY
     Route: 048
     Dates: start: 201611
  13. RYTARY [Suspect]
     Active Substance: CARBIDOPA\LEVODOPA
     Dosage: 61.25/245 MG, ONE CAPSULE+TWO CAPSULES 36.25/145 MG+ONE CAPSULE 61.25/245 MG+TWO CAPS 36.25/145 MG
     Route: 048
     Dates: start: 2018
  14. RYTARY [Suspect]
     Active Substance: CARBIDOPA\LEVODOPA
     Indication: PARKINSON^S DISEASE
     Dosage: 61.25/245 MG, TWO CAPSULES, TWICE DAILY
     Route: 048
     Dates: start: 201608, end: 201611
  15. RYTARY [Suspect]
     Active Substance: CARBIDOPA\LEVODOPA
     Dosage: 36.25/145MG, TWO CAPSULES, FOUR TIMES DAILY
     Route: 048
     Dates: start: 201805, end: 2018

REACTIONS (7)
  - Musculoskeletal stiffness [Unknown]
  - Therapeutic response shortened [Not Recovered/Not Resolved]
  - Memory impairment [Not Recovered/Not Resolved]
  - Hypopnoea [Recovering/Resolving]
  - Muscle spasms [Unknown]
  - Throat tightness [Recovering/Resolving]
  - Anxiety [Not Recovered/Not Resolved]

NARRATIVE: CASE EVENT DATE: 201710
